FAERS Safety Report 14145633 (Version 1)
Quarter: 2017Q4

REPORT INFORMATION
  Report Type: Spontaneous
  Country: US (occurrence: US)
  Receive Date: 20171030
  Receipt Date: 20171030
  Transmission Date: 20180321
  Serious: Yes (Other)
  Sender: FDA-Public Use
  Company Number: None

PATIENT
  Age: 70 Year
  Sex: Male
  Weight: 85.5 kg

DRUGS (11)
  1. INSULIN (BY PUMP) [Concomitant]
  2. LORATADINE. [Concomitant]
     Active Substance: LORATADINE
  3. VELTASSA [Suspect]
     Active Substance: PATIROMER
     Indication: BLOOD POTASSIUM ABNORMAL
     Dosage: ?          QUANTITY:1 ORAL SUSPENSION;?
     Route: 048
     Dates: start: 20170805, end: 20170807
  4. QUINIPRIL [Concomitant]
  5. CLOPIROGEL [Concomitant]
  6. ATORVASTATIN [Concomitant]
     Active Substance: ATORVASTATIN
  7. METOPROLOL. [Concomitant]
     Active Substance: METOPROLOL
  8. VITAMIN D [Concomitant]
     Active Substance: CHOLECALCIFEROL
  9. MULTIVITAMIN [Concomitant]
     Active Substance: VITAMINS
  10. FENOFIBRATE. [Concomitant]
     Active Substance: FENOFIBRATE
  11. VITAMIN C [Concomitant]
     Active Substance: ASCORBIC ACID

REACTIONS (9)
  - Anorectal discomfort [None]
  - Pain [None]
  - Discomfort [None]
  - Constipation [None]
  - Abdominal pain [None]
  - Abdominal pain upper [None]
  - Flatulence [None]
  - Abdominal distension [None]
  - Haemorrhage [None]

NARRATIVE: CASE EVENT DATE: 20170808
